FAERS Safety Report 5796700-1 (Version None)
Quarter: 2008Q3

REPORT INFORMATION
  Report Type: 
  Country: None (occurrence: None)
  Receive Date: 20080701
  Receipt Date: 20080625
  Transmission Date: 20090109
  Serious: Yes (Other)
  Sender: FDA-Public Use
  Company Number: US-JNJFOC-20080606599

PATIENT
  Age: 51 Year
  Sex: Male
  Weight: 90.72 kg

DRUGS (2)
  1. IMODIUM A-D EZ CHEWS [Suspect]
     Route: 048
  2. IMODIUM A-D EZ CHEWS [Suspect]
     Indication: DIARRHOEA
     Route: 048

REACTIONS (2)
  - HAEMATOCHEZIA [None]
  - INAPPROPRIATE SCHEDULE OF DRUG ADMINISTRATION [None]
